FAERS Safety Report 7737135-1 (Version None)
Quarter: 2011Q3

REPORT INFORMATION
  Report Type: 
  Country: None (occurrence: None)
  Receive Date: 20110908
  Receipt Date: 20110830
  Transmission Date: 20111222
  Serious: Yes (Hospitalization)
  Sender: FDA-Public Use
  Company Number: FR-ROCHE-800628

PATIENT
  Sex: Male

DRUGS (14)
  1. CRESTOR [Concomitant]
  2. ACETAMINOPHEN [Concomitant]
     Dosage: PARACETAMOL 500
  3. STRUCTUM [Concomitant]
     Dosage: STRUCTUM 500
  4. PANTOPRAZOLE [Concomitant]
     Dosage: PANTOPRAZOLE 20
  5. AMLODIPINE BESYLATE [Concomitant]
  6. BISOPROLOL FUMARATE [Concomitant]
  7. ALLOPURINOL [Concomitant]
  8. VITAMIN B 1-6-12 [Concomitant]
     Dosage: VITAMINE B1- B6
  9. ASPIRIN [Concomitant]
     Dosage: KARDEGIC 75
  10. POTASSIUM CHLORIDE [Concomitant]
     Dosage: DIFFU K 600
  11. ASCORBIC ACID [Concomitant]
  12. VALIUM [Suspect]
     Route: 048
     Dates: start: 20110704
  13. IMOVANE [Concomitant]
     Dosage: IMOVANE 7.5
  14. TIAPRIDAL [Suspect]
     Route: 048
     Dates: start: 20110704, end: 20110711

REACTIONS (2)
  - SOMNOLENCE [None]
  - EXTRAPYRAMIDAL DISORDER [None]
